FAERS Safety Report 15642172 (Version 1)
Quarter: 2018Q4

REPORT INFORMATION
  Report Type: Spontaneous
  Country: FI (occurrence: FI)
  Receive Date: 20181121
  Receipt Date: 20181121
  Transmission Date: 20190205
  Serious: Yes (Hospitalization)
  Sender: FDA-Public Use
  Company Number: FI-AMGEN-FINSP2018163119

PATIENT
  Age: 75 Year
  Sex: Female

DRUGS (8)
  1. THYROXIN [Concomitant]
     Active Substance: LEVOTHYROXINE
     Dosage: UNK
     Route: 048
  2. ATORVASTATIN RATIOPHARM [Concomitant]
     Active Substance: ATORVASTATIN
     Dosage: UNK
     Route: 048
  3. PANADOL NOVUM [Concomitant]
     Dosage: UNK
     Route: 048
  4. AMLODIPINE VITABALANS [Concomitant]
     Dosage: UNK
     Route: 048
  5. ARANESP [Suspect]
     Active Substance: DARBEPOETIN ALFA
     Indication: ANAEMIA
     Dosage: UNK
     Route: 058
     Dates: start: 20180809, end: 20181001
  6. FURESIS [Concomitant]
     Active Substance: FUROSEMIDE
     Dosage: UNK
     Route: 048
  7. NORSPAN [Concomitant]
     Active Substance: BUPRENORPHINE
     Dosage: UNK
     Route: 062
  8. MELATONIN ORION [Concomitant]
     Dosage: UNK
     Route: 048

REACTIONS (4)
  - Pain of skin [Not Recovered/Not Resolved]
  - Dermatitis bullous [Not Recovered/Not Resolved]
  - Pruritus [Not Recovered/Not Resolved]
  - Scab [Not Recovered/Not Resolved]

NARRATIVE: CASE EVENT DATE: 201809
